FAERS Safety Report 24892147 (Version 1)
Quarter: 2025Q1

REPORT INFORMATION
  Report Type: Spontaneous
  Country: US (occurrence: US)
  Receive Date: 20250128
  Receipt Date: 20250128
  Transmission Date: 20250409
  Serious: No
  Sender: IBSA INSTITUT BIOCHIMIQUE
  Company Number: US-IBSA PHARMA INC.-2023IBS000846

PATIENT

DRUGS (1)
  1. LICART [Suspect]
     Active Substance: DICLOFENAC EPOLAMINE
     Indication: Back pain
     Dates: start: 20231224

REACTIONS (2)
  - Application site pain [Recovering/Resolving]
  - Application site vesicles [Recovering/Resolving]

NARRATIVE: CASE EVENT DATE: 20231201
